FAERS Safety Report 8099454-1 (Version None)
Quarter: 2012Q1

REPORT INFORMATION
  Report Type: 
  Country: None (occurrence: None)
  Receive Date: 20120129
  Receipt Date: 20111007
  Transmission Date: 20120608
  Serious: No
  Sender: FDA-Public Use
  Company Number: US-ABBOTT-11P-163-0861836-00

PATIENT
  Sex: Male
  Weight: 81.72 kg

DRUGS (3)
  1. DAPSONE [Concomitant]
     Indication: ACNE
  2. HUMIRA [Suspect]
     Indication: CROHN'S DISEASE
     Dates: start: 20080101, end: 20110901
  3. HUMIRA [Suspect]
     Dates: start: 20110930

REACTIONS (2)
  - RECTAL HAEMORRHAGE [None]
  - ABDOMINAL PAIN UPPER [None]
